FAERS Safety Report 14534868 (Version 1)
Quarter: 2018Q1

REPORT INFORMATION
  Report Type: Spontaneous
  Country: DE (occurrence: DE)
  Receive Date: 20180215
  Receipt Date: 20180215
  Transmission Date: 20180509
  Serious: Yes (Other)
  Sender: FDA-Public Use
  Company Number: US-ASTRAZENECA-2018SE19097

PATIENT
  Age: 75 Year
  Sex: Female

DRUGS (2)
  1. PRESOMEN COMP [Concomitant]
     Dosage: 0.6MG, UNK
  2. CANDESARTAN CILEXETIL, HYDROCHLOROTHIAZIDE [Suspect]
     Active Substance: CANDESARTAN CILEXETIL\HYDROCHLOROTHIAZIDE
     Indication: PRODUCT USED FOR UNKNOWN INDICATION
     Dosage: 16/12.5 MG, UNK
     Route: 048

REACTIONS (3)
  - Hypokalaemia [Unknown]
  - Cough [Not Recovered/Not Resolved]
  - Cardiac fibrillation [Unknown]

NARRATIVE: CASE EVENT DATE: 201712
